FAERS Safety Report 13221878 (Version 2)
Quarter: 2017Q1

REPORT INFORMATION
  Report Type: Spontaneous
  Country: US (occurrence: EG)
  Receive Date: 20170211
  Receipt Date: 20170228
  Transmission Date: 20170428
  Serious: Yes (Death, Hospitalization)
  Sender: FDA-Public Use
  Company Number: US-SUNOVION-2017SUN000560

PATIENT
  Age: 67 Year
  Sex: Male
  Weight: 65 kg

DRUGS (2)
  1. INDACATEROL AND GLYCOPYRROLATE [Suspect]
     Active Substance: GLYCOPYRROLATE\INDACATEROL MALEATE
     Indication: CHRONIC OBSTRUCTIVE PULMONARY DISEASE
     Dosage: 1 DF, QD
     Route: 055
     Dates: end: 201610
  2. CEFAXONE [Concomitant]
     Active Substance: CEFTRIAXONE
     Dosage: 1 G, UNK

REACTIONS (11)
  - Respiratory failure [Fatal]
  - Coma [Unknown]
  - Chest pain [Unknown]
  - Fatigue [Unknown]
  - Chronic obstructive pulmonary disease [Fatal]
  - Acidosis [Unknown]
  - Hypercapnia [Unknown]
  - Hypoxia [Unknown]
  - Tachycardia [Unknown]
  - Dyspnoea [Unknown]
  - Palpitations [Unknown]
